FAERS Safety Report 6879951-4 (Version None)
Quarter: 2010Q3

REPORT INFORMATION
  Report Type: 
  Country: None (occurrence: None)
  Receive Date: 20100728
  Receipt Date: 20100720
  Transmission Date: 20110219
  Serious: Yes (Hospitalization)
  Sender: FDA-Public Use
  Company Number: US-GILEAD-2010-0030548

PATIENT
  Age: 45 Year
  Sex: Female
  Weight: 107.6 kg

DRUGS (14)
  1. LETAIRIS [Suspect]
     Indication: PULMONARY ARTERIAL HYPERTENSION
     Route: 048
     Dates: start: 20100219
  2. REMODULIN [Concomitant]
  3. LASIX [Concomitant]
  4. COREG [Concomitant]
  5. NORVASC [Concomitant]
  6. CATAPRES [Concomitant]
  7. HYDROCODONE BITARTRATE AND ACETAMINOPHEN [Concomitant]
  8. NASONEX [Concomitant]
  9. LANTUS [Concomitant]
  10. GLIPIZIDE [Concomitant]
  11. HEPARIN [Concomitant]
  12. SODIUM CHLORIDE [Concomitant]
  13. ADVAIR DISKUS 100/50 [Concomitant]
  14. OXYCODONE HCL AND ACETAMINOPHEN [Concomitant]

REACTIONS (1)
  - HYSTERECTOMY [None]
